FAERS Safety Report 17618883 (Version 1)
Quarter: 2020Q2

REPORT INFORMATION
  Report Type: Spontaneous
  Country: FR (occurrence: FR)
  Receive Date: 20200403
  Receipt Date: 20200403
  Transmission Date: 20200713
  Serious: Yes (Other)
  Sender: FDA-Public Use
  Company Number: FR-BAUSCH-BL-2020-008798

PATIENT
  Age: 87 Year
  Sex: Female

DRUGS (6)
  1. PREVISCAN (FLUINDIONE) [Suspect]
     Active Substance: FLUINDIONE
     Indication: MITRAL VALVE DISEASE
     Route: 065
  2. PREVISCAN (FLUINDIONE) [Suspect]
     Active Substance: FLUINDIONE
     Dosage: DRUG DISCONTINUED FOR 2 DAYS
     Route: 065
  3. LAMALINE (CAFFEINE\PARACETAMOL\ATROPA BELLADONNA EXTRACT\PAPAVER SOMNIFERUM TINCTURE) [Suspect]
     Active Substance: ACETAMINOPHEN\BELLADONNA LEAF\CAFFEINE\OPIUM
     Indication: SCIATICA
     Dosage: 6 (UNSPECIFIED) PER DAY
     Route: 065
  4. PREDNISOLONE. [Suspect]
     Active Substance: PREDNISOLONE
     Indication: SCIATICA
     Route: 065
  5. PREVISCAN (FLUINDIONE) [Suspect]
     Active Substance: FLUINDIONE
     Dosage: ON THE 4TH DAY
     Route: 065
  6. CORDARONE [Concomitant]
     Active Substance: AMIODARONE HYDROCHLORIDE
     Indication: PRODUCT USED FOR UNKNOWN INDICATION

REACTIONS (9)
  - Pain [Unknown]
  - Phlebitis [Unknown]
  - Burning sensation [Unknown]
  - Gait disturbance [Unknown]
  - Sciatica [Unknown]
  - Pain in extremity [Unknown]
  - Joint swelling [Unknown]
  - International normalised ratio increased [Recovered/Resolved]
  - Haematoma [Not Recovered/Not Resolved]
